FAERS Safety Report 24561020 (Version 2)
Quarter: 2024Q4

REPORT INFORMATION
  Report Type: Spontaneous
  Country: NL (occurrence: NL)
  Receive Date: 20241029
  Receipt Date: 20241116
  Transmission Date: 20250115
  Serious: Yes (Other)
  Sender: AUROBINDO
  Company Number: NL-ABBVIE-5843224

PATIENT
  Sex: Female

DRUGS (8)
  1. OXYCODONE [Suspect]
     Active Substance: OXYCODONE
     Indication: Headache
     Dosage: UNK
     Route: 065
  2. CARBIDOPA\LEVODOPA [Suspect]
     Active Substance: CARBIDOPA\LEVODOPA
     Indication: Parkinson^s disease
     Dosage: UNK
     Route: 065
     Dates: start: 20210208
  3. CARBIDOPA\LEVODOPA [Suspect]
     Active Substance: CARBIDOPA\LEVODOPA
     Dosage: UNK [CND: 5.2ML/H; END: 2.5MLREMAINS AT 24]
     Route: 065
     Dates: start: 20240405, end: 20240708
  4. CARBIDOPA\LEVODOPA [Suspect]
     Active Substance: CARBIDOPA\LEVODOPA
     Dosage: UNK [MD: 10.8ML; CD: 6.5ML/H; ED: 4.0ML; CND: 5.2ML/H; END: 2.5MLDURATION TEXT: REMAINS AT 24 HOURS]
     Route: 065
     Dates: start: 20240708, end: 20241008
  5. CARBIDOPA\LEVODOPA [Suspect]
     Active Substance: CARBIDOPA\LEVODOPA
     Dosage: UNK [MD:10.8ML; CD:6.5ML/H; ED:4.00MLDURATION TEXT: REMAINS AT 24 HOURS]
     Route: 065
     Dates: start: 20241008
  6. POLYETHYLENE GLYCOLS [Concomitant]
     Active Substance: POLYETHYLENE GLYCOLS
     Indication: Gastrointestinal motility disorder
     Dosage: UNK (SOMETIMES EXTRA DOSE)
     Route: 065
  7. NEUPRO [Concomitant]
     Active Substance: ROTIGOTINE
     Indication: Parkinson^s disease
     Dosage: 2 MILLIGRAM
     Route: 062
  8. RIVOTRIL [Concomitant]
     Active Substance: CLONAZEPAM
     Indication: Sleep disorder
     Dosage: UNK (DROPS NOS)
     Route: 065

REACTIONS (23)
  - Mental impairment [Not Recovered/Not Resolved]
  - Parkinson^s disease [Not Recovered/Not Resolved]
  - Deep brain stimulation [Unknown]
  - Arthralgia [Not Recovered/Not Resolved]
  - Dyskinesia [Not Recovered/Not Resolved]
  - Feeding disorder [Not Recovered/Not Resolved]
  - Appetite disorder [Unknown]
  - Faeces hard [Unknown]
  - Gait inability [Not Recovered/Not Resolved]
  - Headache [Not Recovered/Not Resolved]
  - Hypersomnia [Not Recovered/Not Resolved]
  - Infection [Not Recovered/Not Resolved]
  - Loss of personal independence in daily activities [Not Recovered/Not Resolved]
  - Memory impairment [Not Recovered/Not Resolved]
  - Osteoarthritis [Not Recovered/Not Resolved]
  - On and off phenomenon [Not Recovered/Not Resolved]
  - Stoma site erythema [Not Recovered/Not Resolved]
  - Speech disorder [Not Recovered/Not Resolved]
  - Stoma site infection [Not Recovered/Not Resolved]
  - Extra dose administered [Not Recovered/Not Resolved]
  - Bowel movement irregularity [Recovering/Resolving]
  - Therapeutic product effect variable [Not Recovered/Not Resolved]
  - Device leakage [Unknown]
